FAERS Safety Report 5529825-6 (Version None)
Quarter: 2007Q4

REPORT INFORMATION
  Report Type: 
  Country: None (occurrence: None)
  Receive Date: 20071129
  Receipt Date: 20070503
  Transmission Date: 20080405
  Serious: No
  Sender: FDA-Public Use
  Company Number: US-ABBOTT-07P-163-0367026-00

PATIENT
  Sex: Female
  Weight: 103 kg

DRUGS (5)
  1. MERIDIA [Suspect]
     Indication: WEIGHT CONTROL
     Route: 048
     Dates: start: 20050201
  2. PRINZIDE [Concomitant]
     Indication: HYPERTENSION
     Dosage: 20/12.5MG ONE QD
     Route: 048
  3. ATORVASTATIN CALCIUM [Concomitant]
     Indication: BLOOD CHOLESTEROL
     Route: 048
  4. ACTOS [Concomitant]
     Indication: BLOOD CHOLESTEROL
     Route: 048
  5. ACETAMINOPHEN W/ CODEINE [Concomitant]
     Indication: PAIN
     Route: 048

REACTIONS (1)
  - DRUG SCREEN POSITIVE [None]
